FAERS Safety Report 13655298 (Version 2)
Quarter: 2017Q2

REPORT INFORMATION
  Report Type: Report from Study
  Country: US (occurrence: US)
  Receive Date: 20170615
  Receipt Date: 20170627
  Transmission Date: 20170830
  Serious: Yes (Other)
  Sender: FDA-Public Use
  Company Number: US-AMGEN-USASP2017088744

PATIENT
  Age: 80 Year
  Sex: Female
  Weight: 84.81 kg

DRUGS (8)
  1. MAGNESIUM OXIDE. [Concomitant]
     Active Substance: MAGNESIUM OXIDE
     Dosage: 400 MG, QD
     Route: 048
  2. PROCRIT [Suspect]
     Active Substance: ERYTHROPOIETIN
     Indication: NEPHROGENIC ANAEMIA
     Dosage: 20000 UNIT, Q2WK
     Route: 065
  3. GABAPENTIN. [Concomitant]
     Active Substance: GABAPENTIN
     Dosage: 600 MG, TID
     Route: 048
  4. TYLENOL EXTRA STRENGTH [Concomitant]
     Active Substance: ACETAMINOPHEN
     Dosage: 1000 MG, AS NECESSARY
     Route: 048
  5. SERTRALINE [Concomitant]
     Active Substance: SERTRALINE HYDROCHLORIDE
     Dosage: 2 DF, QD
     Route: 048
  6. ASPIRIN. [Concomitant]
     Active Substance: ASPIRIN
     Dosage: 81 MG, QD
     Route: 048
  7. PROCRIT [Suspect]
     Active Substance: ERYTHROPOIETIN
     Dosage: 20000 UNIT, Q2WK
     Route: 065
  8. ALLOPURINOL. [Concomitant]
     Active Substance: ALLOPURINOL
     Dosage: 1 DF, QD
     Route: 048

REACTIONS (29)
  - Dizziness [Unknown]
  - Arteriovenous fistula operation [Unknown]
  - Essential hypertension [Unknown]
  - Renal hypertension [Unknown]
  - Hyperkalaemia [Unknown]
  - Blood creatinine abnormal [Unknown]
  - Blood urea abnormal [Unknown]
  - Blood parathyroid hormone abnormal [Unknown]
  - Drug hypersensitivity [Unknown]
  - Cardiac failure congestive [Unknown]
  - Cardiorenal syndrome [Unknown]
  - Nephrosclerosis [Unknown]
  - Iron deficiency anaemia [Unknown]
  - Anaemia [Unknown]
  - Coronary artery disease [Unknown]
  - Fatigue [Unknown]
  - End stage renal disease [Unknown]
  - Weight increased [Unknown]
  - Oedema peripheral [Unknown]
  - Hypercholesterolaemia [Unknown]
  - Microalbuminuria [Unknown]
  - Drug dose omission [Unknown]
  - Rheumatoid arthritis [Unknown]
  - Blood pressure diastolic decreased [Unknown]
  - Type 2 diabetes mellitus [Unknown]
  - Dyspnoea exertional [Unknown]
  - Gastrooesophageal reflux disease [Unknown]
  - Hyperphosphataemia [Unknown]
  - Hyperparathyroidism secondary [Unknown]

NARRATIVE: CASE EVENT DATE: 20170320
